FAERS Safety Report 6616974-4 (Version None)
Quarter: 2010Q1

REPORT INFORMATION
  Report Type: 
  Country: None (occurrence: None)
  Receive Date: 20100302
  Receipt Date: 20050608
  Transmission Date: 20100710
  Serious: Yes (Hospitalization)
  Sender: FDA-Public Use
  Company Number: 2009-2995

PATIENT
  Age: 69 Year
  Sex: Female

DRUGS (4)
  1. APO-GO AMPOULES (APO-GO) (APOMORPHINE HYDROCHLORIDE) (APOMORPHINE HYDR [Suspect]
     Indication: PARKINSON'S DISEASE
     Dosage: 120 MG (5 MG,1 IN 1 HR),SUBCUTANEOUS
     Route: 058
     Dates: start: 20050329, end: 20050419
  2. RAMIPRIL [Concomitant]
  3. MADOPAR (MADOPAR /00349201/ (BENSERAZIDE HYDROCHLORIDE, LEVODOPA) [Concomitant]
  4. DOMPERIDONE (DOMPERIDONE) (DOMEPERIDONE) [Concomitant]

REACTIONS (1)
  - DEPRESSION [None]
